FAERS Safety Report 25458571 (Version 2)
Quarter: 2025Q2

REPORT INFORMATION
  Report Type: Spontaneous
  Country: US (occurrence: US)
  Receive Date: 20250620
  Receipt Date: 20250625
  Transmission Date: 20250716
  Serious: Yes (Death, Hospitalization, Other)
  Sender: RANBAXY
  Company Number: US-SUN PHARMACEUTICAL INDUSTRIES LTD-2025R1-512445

PATIENT
  Age: 63 Year
  Sex: Male

DRUGS (4)
  1. NOREPINEPHRINE BITARTRATE [Suspect]
     Active Substance: NOREPINEPHRINE BITARTRATE
     Indication: Atrial fibrillation
     Route: 042
  2. AMIODARONE [Suspect]
     Active Substance: AMIODARONE
     Indication: Atrial fibrillation
     Route: 042
  3. VASOPRESSIN [Suspect]
     Active Substance: VASOPRESSIN
     Indication: Atrial fibrillation
     Route: 042
  4. MILRINONE [Suspect]
     Active Substance: MILRINONE
     Indication: Atrial fibrillation
     Route: 042

REACTIONS (4)
  - Bradycardia [Fatal]
  - Cardiac arrest [Fatal]
  - Delirium [Unknown]
  - Pleural effusion [Unknown]
